FAERS Safety Report 18163236 (Version 4)
Quarter: 2021Q1

REPORT INFORMATION
  Report Type: Spontaneous
  Country: JP (occurrence: JP)
  Receive Date: 20200818
  Receipt Date: 20210112
  Transmission Date: 20210419
  Serious: Yes (Death, Other)
  Sender: FDA-Public Use
  Company Number: JP-JAZZ-2020-JP-010269

PATIENT
  Age: 55 Year
  Sex: Female
  Weight: 49.8 kg

DRUGS (6)
  1. DEFITELIO [Suspect]
     Active Substance: DEFIBROTIDE SODIUM
     Indication: VENOOCCLUSIVE LIVER DISEASE
     Dosage: 12.5 MG/KG/24 HOURS
     Route: 042
     Dates: start: 20200715, end: 20200715
  2. DEFITELIO [Suspect]
     Active Substance: DEFIBROTIDE SODIUM
     Dosage: 25 MG/KG/DAY
     Route: 042
     Dates: start: 20200716, end: 20200726
  3. DEFITELIO [Suspect]
     Active Substance: DEFIBROTIDE SODIUM
     Dosage: 12.5 MG/KG/24 HOURS
     Route: 042
     Dates: start: 20200727, end: 20200727
  4. PACLITAXEL. [Concomitant]
     Active Substance: PACLITAXEL
     Indication: PRODUCT USED FOR UNKNOWN INDICATION
  5. OXALIPLATIN. [Concomitant]
     Active Substance: OXALIPLATIN
     Indication: BREAST CANCER
  6. AVASTIN [Concomitant]
     Active Substance: BEVACIZUMAB
     Indication: PRODUCT USED FOR UNKNOWN INDICATION

REACTIONS (5)
  - Venoocclusive liver disease [Fatal]
  - Renal failure [Unknown]
  - Off label use [Unknown]
  - Condition aggravated [Fatal]
  - Breast cancer [Fatal]

NARRATIVE: CASE EVENT DATE: 202007
